FAERS Safety Report 8198962-2 (Version None)
Quarter: 2012Q1

REPORT INFORMATION
  Report Type: 
  Country: None (occurrence: None)
  Receive Date: 20120309
  Receipt Date: 20120227
  Transmission Date: 20120608
  Serious: No
  Sender: FDA-Public Use
  Company Number: KR-JNJFOC-20120301556

PATIENT
  Age: 57 Year
  Sex: Female

DRUGS (3)
  1. WARFARIN SODIUM [Concomitant]
     Indication: VENOUS OCCLUSION
     Route: 065
     Dates: start: 20120101
  2. DURAGESIC-100 [Suspect]
     Indication: BACK PAIN
     Route: 062
     Dates: start: 20120101
  3. BLOOD PRESSURE MEDICATION NOS [Concomitant]
     Route: 065

REACTIONS (5)
  - DIZZINESS [None]
  - WRONG TECHNIQUE IN DRUG USAGE PROCESS [None]
  - DEPRESSED MOOD [None]
  - HYPERSENSITIVITY [None]
  - DRUG ADMINISTRATION ERROR [None]
